FAERS Safety Report 21042006 (Version 3)
Quarter: 2022Q3

REPORT INFORMATION
  Report Type: Other
  Country: JP (occurrence: JP)
  Receive Date: 20220705
  Receipt Date: 20220915
  Transmission Date: 20221027
  Serious: Yes (Hospitalization)
  Sender: FDA-Public Use
  Company Number: JP-CHUGAI-2021033092

PATIENT
  Age: 53 Year
  Sex: Male
  Weight: 59 kg

DRUGS (9)
  1. ATEZOLIZUMAB [Suspect]
     Active Substance: ATEZOLIZUMAB
     Indication: Lung adenocarcinoma
     Dosage: 1200 MILLIGRAM, SINGLE
     Route: 041
     Dates: start: 20210623, end: 20210623
  2. ATEZOLIZUMAB [Suspect]
     Active Substance: ATEZOLIZUMAB
     Dosage: 1200 MILLIGRAM, ONCE/4WEEKS
     Route: 041
     Dates: start: 20210727, end: 20210824
  3. BEVACIZUMAB [Suspect]
     Active Substance: BEVACIZUMAB
     Indication: Lung adenocarcinoma
     Dosage: 890 MILLIGRAM, QD
     Route: 041
     Dates: start: 20210623, end: 20210623
  4. BEVACIZUMAB [Suspect]
     Active Substance: BEVACIZUMAB
     Dosage: 880 MILLIGRAM, QD
     Route: 041
     Dates: start: 20210727, end: 20210727
  5. BEVACIZUMAB [Suspect]
     Active Substance: BEVACIZUMAB
     Dosage: 800 MILLIGRAM, QD
     Route: 041
     Dates: start: 20210824, end: 20210824
  6. CARBOPLATIN [Concomitant]
     Active Substance: CARBOPLATIN
     Indication: Lung adenocarcinoma
     Dosage: 490 MILLIGRAM
     Route: 041
     Dates: start: 20210623
  7. CARBOPLATIN [Concomitant]
     Active Substance: CARBOPLATIN
     Dosage: 400 MILLIGRAM
     Route: 041
     Dates: start: 20210727, end: 20210727
  8. PACLITAXEL [Concomitant]
     Active Substance: PACLITAXEL
     Indication: Lung adenocarcinoma
     Dosage: 260 MILLIGRAM
     Route: 041
     Dates: start: 20210623
  9. PACLITAXEL [Concomitant]
     Active Substance: PACLITAXEL
     Dosage: 225 MILLIGRAM
     Route: 041
     Dates: start: 20210727, end: 20210727

REACTIONS (3)
  - Enterocolitis [Recovered/Resolved]
  - Headache [Unknown]
  - Protein urine [Recovered/Resolved]

NARRATIVE: CASE EVENT DATE: 20210726
